FAERS Safety Report 5090213-0 (Version None)
Quarter: 2006Q3

REPORT INFORMATION
  Report Type: 
  Country: None (occurrence: None)
  Receive Date: 20060823
  Receipt Date: 20060808
  Transmission Date: 20061208
  Serious: Yes (Other)
  Sender: FDA-Public Use
  Company Number: 8018351

PATIENT
  Age: 53 Year
  Sex: Male

DRUGS (3)
  1. KEPPRA [Suspect]
     Indication: PARTIAL SEIZURES WITH SECONDARY GENERALISATION
  2. VALPROIC ACID [Concomitant]
  3. LAMICTAL [Concomitant]

REACTIONS (1)
  - BONE MARROW FAILURE [None]
